FAERS Safety Report 11518618 (Version 8)
Quarter: 2016Q2

REPORT INFORMATION
  Report Type: Spontaneous
  Country: IL (occurrence: IL)
  Receive Date: 20150917
  Receipt Date: 20160414
  Transmission Date: 20160815
  Serious: Yes (Death, Hospitalization, Other)
  Sender: FDA-Public Use
  Company Number: IL-ABBVIE-15P-082-1464306-00

PATIENT
  Age: 80 Year
  Sex: Female
  Weight: 59 kg

DRUGS (5)
  1. VIEKIRAX [Suspect]
     Active Substance: OMBITASVIR\PARITAPREVIR\RITONAVIR
     Indication: CHRONIC HEPATITIS C
     Route: 048
  2. ALDOSPIRONE [Concomitant]
     Active Substance: SPIRONOLACTONE
     Indication: PRODUCT USED FOR UNKNOWN INDICATION
     Route: 048
     Dates: start: 20150909, end: 20150927
  3. EXVIERA [Suspect]
     Active Substance: DASABUVIR
     Indication: CHRONIC HEPATITIS C
     Route: 048
  4. RIBAVIRIN. [Suspect]
     Active Substance: RIBAVIRIN
     Indication: CHRONIC HEPATITIS C
     Route: 048
  5. DIOVAN [Concomitant]
     Active Substance: VALSARTAN
     Indication: PRODUCT USED FOR UNKNOWN INDICATION
     Route: 048
     Dates: start: 20150909, end: 20150927

REACTIONS (13)
  - Renal failure [Not Recovered/Not Resolved]
  - International normalised ratio abnormal [Unknown]
  - Nausea [Unknown]
  - Hepatic encephalopathy [Not Recovered/Not Resolved]
  - Chromaturia [Unknown]
  - Hepatorenal syndrome [Not Recovered/Not Resolved]
  - Malaise [Fatal]
  - Decreased appetite [Unknown]
  - Multiple organ dysfunction syndrome [Fatal]
  - Pancreatitis [Recovered/Resolved]
  - Acute hepatic failure [Fatal]
  - Hepatic cirrhosis [Unknown]
  - Hyponatraemia [Unknown]

NARRATIVE: CASE EVENT DATE: 20150902
